FAERS Safety Report 20920106 (Version 1)
Quarter: 2022Q2

REPORT INFORMATION
  Report Type: Spontaneous
  Country: US (occurrence: None)
  Receive Date: 20220605
  Receipt Date: 20220605
  Transmission Date: 20220721
  Serious: Yes (Life-Threatening, Disabling)
  Sender: FDA-Public Use
  Company Number: None

PATIENT
  Age: 62 Year
  Sex: Female
  Weight: 63 kg

DRUGS (1)
  1. BUPROPION [Suspect]
     Active Substance: BUPROPION
     Indication: Depression
     Dosage: OTHER QUANTITY : 3 TABLET(S);?FREQUENCY : DAILY;?
     Route: 048

REACTIONS (3)
  - Seizure [None]
  - Fall [None]
  - Head injury [None]

NARRATIVE: CASE EVENT DATE: 20180218
